FAERS Safety Report 5757099-X (Version None)
Quarter: 2008Q2

REPORT INFORMATION
  Report Type: 
  Country: None (occurrence: None)
  Receive Date: 20080529
  Receipt Date: 20080522
  Transmission Date: 20081010
  Serious: Yes (Other)
  Sender: FDA-Public Use
  Company Number: CHPA2008US08683

PATIENT
  Age: 46 Year
  Sex: Female
  Weight: 53.5 kg

DRUGS (2)
  1. NICOTINE [Suspect]
     Indication: SMOKING CESSATION THERAPY
     Dosage: 21 MG, QD, TRANSDERMAL
     Route: 062
     Dates: start: 20080501, end: 20080521
  2. DRUG THERAPY NOS (DRUG THERAPY NOS) [Concomitant]

REACTIONS (6)
  - ABNORMAL DREAMS [None]
  - CONVULSION [None]
  - HALLUCINATION, AUDITORY [None]
  - INSOMNIA [None]
  - STRESS [None]
  - TREATMENT NONCOMPLIANCE [None]
